FAERS Safety Report 6429632-6 (Version None)
Quarter: 2009Q4

REPORT INFORMATION
  Report Type: 
  Country: None (occurrence: None)
  Receive Date: 20091103
  Receipt Date: 20091019
  Transmission Date: 20100525
  Serious: Yes (Death, Hospitalization)
  Sender: FDA-Public Use
  Company Number: 02100-JPN-05-0639

PATIENT
  Age: 64 Year
  Sex: Male
  Weight: 44.8 kg

DRUGS (2)
  1. PLETAL [Suspect]
     Indication: CEREBRAL INFARCTION
     Dosage: 81 MG, QD ORAL
     Route: 048
     Dates: start: 20051021, end: 20051219
  2. FAMOTIDINE [Concomitant]

REACTIONS (12)
  - ASTHENIA [None]
  - ATELECTASIS [None]
  - BLOOD PRESSURE DECREASED [None]
  - CARDIAC FAILURE [None]
  - CEREBRAL HAEMORRHAGE [None]
  - FALL [None]
  - HAEMORRHAGE [None]
  - MOUTH HAEMORRHAGE [None]
  - PLEURAL EFFUSION [None]
  - PNEUMONIA [None]
  - STRESS ULCER [None]
  - UPPER GASTROINTESTINAL HAEMORRHAGE [None]
